FAERS Safety Report 11408762 (Version 3)
Quarter: 2015Q3

REPORT INFORMATION
  Report Type: Report from Study
  Country: BR (occurrence: BR)
  Receive Date: 20150823
  Receipt Date: 20150909
  Transmission Date: 20151125
  Serious: Yes (Hospitalization, Other)
  Sender: FDA-Public Use
  Company Number: PHHY2015BR100204

PATIENT
  Sex: Female

DRUGS (11)
  1. TRENTAL [Concomitant]
     Active Substance: PENTOXIFYLLINE
     Indication: ARRHYTHMIA
     Dosage: 1 DF, QD
     Route: 048
  2. DIOVAN HCT [Suspect]
     Active Substance: HYDROCHLOROTHIAZIDE\VALSARTAN
     Indication: HYPERTENSION
     Dosage: 1 DF, QD
     Route: 048
  3. EXELON PATCH [Suspect]
     Active Substance: RIVASTIGMINE
     Indication: DEMENTIA
     Dosage: 4.6 MG, QD (5 CM2)
     Route: 062
  4. RISPERIDONE. [Suspect]
     Active Substance: RISPERIDONE
     Indication: MALAISE
     Dosage: 2 DF, QD
     Route: 048
     Dates: start: 201506
  5. SELOZOK [Concomitant]
     Active Substance: METOPROLOL SUCCINATE
     Indication: ARRHYTHMIA
     Dosage: 1 DF, QD
     Route: 048
  6. PLAVIX [Concomitant]
     Active Substance: CLOPIDOGREL BISULFATE
     Indication: CARDIOVASCULAR INSUFFICIENCY
     Dosage: 1 DF, QD
     Route: 048
  7. INSULIN [Concomitant]
     Active Substance: INSULIN NOS
     Indication: DIABETES MELLITUS
     Dosage: 20 U, QD
     Route: 048
  8. QUETIAPINE [Suspect]
     Active Substance: QUETIAPINE
     Dosage: 3 DF, QD
     Route: 048
  9. QUETIAPINE [Suspect]
     Active Substance: QUETIAPINE
     Indication: INSOMNIA
     Dosage: 1 DF, UNK
     Route: 048
     Dates: start: 20150626
  10. GLIFAGE [Concomitant]
     Active Substance: METFORMIN HYDROCHLORIDE
     Indication: DIABETES MELLITUS
     Dosage: 3 DF, QD
     Route: 048
  11. AVALOX [Suspect]
     Active Substance: MOXIFLOXACIN HYDROCHLORIDE
     Indication: PNEUMONIA
     Dosage: 1 DF, QD
     Route: 048

REACTIONS (12)
  - Arterial occlusive disease [Not Recovered/Not Resolved]
  - Somnolence [Not Recovered/Not Resolved]
  - Arthralgia [Recovered/Resolved]
  - Pain in extremity [Unknown]
  - Insomnia [Unknown]
  - Cerebrovascular accident [Recovered/Resolved]
  - Glaucoma [Not Recovered/Not Resolved]
  - Dementia [Not Recovered/Not Resolved]
  - Delirium [Unknown]
  - Chondropathy [Recovered/Resolved]
  - Pneumonia [Recovered/Resolved]
  - Cartilage injury [Unknown]
